FAERS Safety Report 5702851-X (Version None)
Quarter: 2008Q2

REPORT INFORMATION
  Report Type: 
  Country: None (occurrence: None)
  Receive Date: 20080411
  Receipt Date: 20080408
  Transmission Date: 20081010
  Serious: Yes (Other)
  Sender: FDA-Public Use
  Company Number: US-BRISTOL-MYERS SQUIBB COMPANY-14144331

PATIENT
  Sex: Male

DRUGS (1)
  1. TEQUIN [Suspect]
     Dates: start: 20050201, end: 20050301

REACTIONS (1)
  - DIABETES MELLITUS [None]
